FAERS Safety Report 4762844-6 (Version None)
Quarter: 2005Q3

REPORT INFORMATION
  Report Type: 
  Country: None (occurrence: None)
  Receive Date: 20050906
  Receipt Date: 20050824
  Transmission Date: 20060218
  Serious: Yes (Death)
  Sender: FDA-Public Use
  Company Number: 2005-DE-03050GD

PATIENT
  Sex: 0

DRUGS (7)
  1. MORPHINE [Suspect]
     Indication: EPIDURAL ANAESTHESIA
     Dosage: 2 - 4 MG BOLUS, ED,
     Route: 008
  2. MEPIVACAINE HCL [Suspect]
     Indication: EPIDURAL ANAESTHESIA
     Dosage: 4 - 6 ML FOLLOWED BY 5 - 8 ML/H (SEE TEXT)), ED
     Route: 008
  3. OXYGEN (OXYGEN) [Suspect]
     Indication: GENERAL ANAESTHESIA
     Dosage: IH
     Route: 055
  4. NITROUS OXIDE W/ OXYGEN [Suspect]
     Indication: GENERAL ANAESTHESIA
     Dosage: IH
     Route: 055
  5. VOLATILE ANESTHETIC AGENT (ANAESTHETICS, GENERAL) [Suspect]
     Indication: GENERAL ANAESTHESIA
     Dosage: IH
     Route: 055
  6. FENTANYL [Suspect]
     Indication: GENERAL ANAESTHESIA
     Dosage: INCREMENTAL DOSES
  7. NON-DEPPOLARIZING MUSCLE RELAXANT (MUSCLE RELAXANTS) [Suspect]
     Indication: GENERAL ANAESTHESIA

REACTIONS (2)
  - OPERATIVE HAEMORRHAGE [None]
  - THORACIC HAEMORRHAGE [None]
